FAERS Safety Report 13046864 (Version 1)
Quarter: 2016Q4

REPORT INFORMATION
  Report Type: Report from Study
  Country: None (occurrence: IT)
  Receive Date: 20161220
  Receipt Date: 20161220
  Transmission Date: 20170207
  Serious: Yes (Death)
  Sender: FDA-Public Use
  Company Number: IT-ABBVIE-16P-083-1813723-00

PATIENT
  Age: 68 Year
  Sex: Female
  Weight: 98 kg

DRUGS (1)
  1. DUODOPA [Suspect]
     Active Substance: CARBIDOPA\LEVODOPA
     Indication: PARKINSON^S DISEASE
     Dosage: MD 6.2 (+3); CR 2.2; ED 2
     Route: 050
     Dates: start: 20141118, end: 20161214

REACTIONS (2)
  - General physical health deterioration [Fatal]
  - Bone marrow disorder [Fatal]

NARRATIVE: CASE EVENT DATE: 201612
